FAERS Safety Report 9253350 (Version 1)
Quarter: 2013Q2

REPORT INFORMATION
  Report Type: Spontaneous
  Country: FR (occurrence: FR)
  Receive Date: 20130424
  Receipt Date: 20130424
  Transmission Date: 20140414
  Serious: Yes (Hospitalization)
  Sender: FDA-Public Use
  Company Number: FR-BRISTOL-MYERS SQUIBB COMPANY-18792861

PATIENT
  Age: 68 Year
  Sex: Male

DRUGS (6)
  1. BYETTA [Suspect]
     Indication: TYPE 2 DIABETES MELLITUS
     Route: 058
     Dates: start: 20130110, end: 20130309
  2. MICARDIS [Suspect]
     Indication: HYPERTENSION
     Route: 048
     Dates: end: 20130309
  3. CLOPIDOGREL BISULFATE [Concomitant]
     Route: 048
  4. METFORMIN [Concomitant]
     Dates: end: 20130309
  5. ATORVASTATIN [Concomitant]
     Route: 048
  6. OGASTORO [Concomitant]
     Route: 048
     Dates: end: 20130309

REACTIONS (3)
  - Renal failure acute [Recovered/Resolved]
  - Pancreatitis acute [Recovered/Resolved]
  - Pyelonephritis [Recovered/Resolved]
